FAERS Safety Report 22136234 (Version 3)
Quarter: 2023Q2

REPORT INFORMATION
  Report Type: Spontaneous
  Country: ES (occurrence: None)
  Receive Date: 20230324
  Receipt Date: 20230417
  Transmission Date: 20230722
  Serious: Yes (Other)
  Sender: FDA-Public Use
  Company Number: ES-ROCHE-3314091

PATIENT
  Age: 23 Year
  Sex: Female

DRUGS (1)
  1. OCRELIZUMAB [Suspect]
     Active Substance: OCRELIZUMAB
     Indication: Product used for unknown indication
     Dosage: PATIENT SWITCHED TO CYCLES EVERY 7 MONTHS, LAST DOSE WAS ON 27/OCT/2022
     Route: 042
     Dates: start: 20200220

REACTIONS (2)
  - Psoriasis [Recovering/Resolving]
  - Hypogammaglobulinaemia [Not Recovered/Not Resolved]

NARRATIVE: CASE EVENT DATE: 20210302
